FAERS Safety Report 7627281-5 (Version None)
Quarter: 2011Q3

REPORT INFORMATION
  Report Type: 
  Country: None (occurrence: None)
  Receive Date: 20110721
  Receipt Date: 20110718
  Transmission Date: 20111222
  Serious: Yes (Death, Hospitalization)
  Sender: FDA-Public Use
  Company Number: PHHY2011BR64553

PATIENT
  Sex: Female

DRUGS (6)
  1. DIOVAN [Suspect]
     Indication: HYPERTENSION
     Dosage: 160 MG VALSARTAN, DAILY
     Route: 048
     Dates: end: 20100901
  2. EXFORGE [Suspect]
     Indication: HYPERTENSION
     Dosage: 160 MG VALSARATAN AND 10 MG AMLODIPINE, DAILY
     Route: 048
     Dates: start: 20100901
  3. METFORMIN HYDROCHLORIDE [Concomitant]
     Indication: DIABETES MELLITUS
     Dosage: 500 MG, DAILY
     Route: 048
  4. INSULIN [Concomitant]
     Indication: DIABETES MELLITUS
     Dosage: 30 IU, DAILY
     Route: 048
  5. CLONAZEPAM [Concomitant]
     Indication: SLEEP DISORDER
     Dosage: 5 MG AT NIGHT
     Route: 048
  6. SIMVASTATIN [Concomitant]
     Indication: BLOOD CHOLESTEROL INCREASED
     Dosage: 10 MG AT NIGHT
     Route: 048

REACTIONS (7)
  - PNEUMONIA [None]
  - PULMONARY OEDEMA [None]
  - DYSPNOEA [None]
  - HAEMOPTYSIS [None]
  - RESPIRATORY FAILURE [None]
  - COUGH [None]
  - SEDATION [None]
